FAERS Safety Report 7986903-X (Version None)
Quarter: 2011Q4

REPORT INFORMATION
  Report Type: 
  Country: None (occurrence: None)
  Receive Date: 20111216
  Receipt Date: 20110304
  Transmission Date: 20120403
  Serious: Yes (Hospitalization)
  Sender: FDA-Public Use
  Company Number: US-BRISTOL-MYERS SQUIBB COMPANY-15591449

PATIENT
  Age: 26 Year
  Sex: Male

DRUGS (14)
  1. ABILIFY [Suspect]
     Indication: ANXIETY DISORDER
     Dates: end: 20110101
  2. CLONAZEPAM [Suspect]
     Indication: DEPRESSION
     Dates: end: 20110101
  3. EFFEXOR [Suspect]
     Indication: ANXIETY DISORDER
     Dosage: THREE ADDITIONAL 75 MG TABS
     Dates: start: 20110201
  4. CLONAZEPAM [Suspect]
     Indication: ANXIETY DISORDER
     Dates: end: 20110101
  5. PROZAC [Suspect]
     Indication: ANXIETY DISORDER
     Dates: end: 20110101
  6. PROZAC [Suspect]
     Indication: DEPRESSION
     Dates: end: 20110101
  7. EFFEXOR [Suspect]
     Indication: DEPRESSION
     Dosage: THREE ADDITIONAL 75 MG TABS
     Dates: start: 20110201
  8. WELLBUTRIN [Suspect]
     Indication: ANXIETY DISORDER
     Dates: end: 20110101
  9. SEROQUEL [Concomitant]
     Indication: DEPRESSION
     Dosage: TABS
     Dates: start: 20110101
  10. ABILIFY [Suspect]
     Indication: DEPRESSION
     Dates: end: 20110101
  11. EFFEXOR XR [Suspect]
     Indication: ANXIETY DISORDER
     Route: 048
     Dates: start: 20110101, end: 20110201
  12. WELLBUTRIN [Suspect]
     Indication: DEPRESSION
     Dates: end: 20110101
  13. SEROQUEL [Concomitant]
     Indication: ANXIETY
     Dosage: TABS
     Dates: start: 20110101
  14. EFFEXOR XR [Suspect]
     Indication: DEPRESSION
     Route: 048
     Dates: start: 20110101, end: 20110201

REACTIONS (1)
  - DEPRESSION [None]
